FAERS Safety Report 7957204-0 (Version None)
Quarter: 2011Q4

REPORT INFORMATION
  Report Type: 
  Country: None (occurrence: None)
  Receive Date: 20111205
  Receipt Date: 20111129
  Transmission Date: 20120403
  Serious: Yes (Other)
  Sender: FDA-Public Use
  Company Number: AU-B.I. PHARMACEUTICALS,INC./RIDGEFIELD-2011-AU-01507AU

PATIENT
  Sex: Male

DRUGS (5)
  1. FUROSEMIDE [Concomitant]
     Dosage: 40 MG
  2. COVERSYL PLUS [Concomitant]
  3. TOPROL-XL [Concomitant]
  4. PRADAXA [Suspect]
     Indication: ATRIAL FIBRILLATION
     Dosage: 110 MG
     Dates: start: 20110815, end: 20110908
  5. ALDACTONE [Concomitant]
     Dosage: 25 MG

REACTIONS (1)
  - CARDIAC FAILURE CONGESTIVE [None]
